FAERS Safety Report 8003568-1 (Version None)
Quarter: 2011Q4

REPORT INFORMATION
  Report Type: 
  Country: None (occurrence: None)
  Receive Date: 20111222
  Receipt Date: 20111213
  Transmission Date: 20120403
  Serious: Yes (Hospitalization)
  Sender: FDA-Public Use
  Company Number: IE-MEDIMMUNE-MEDI-0014243

PATIENT
  Sex: Male
  Weight: 4.76 kg

DRUGS (6)
  1. SYNAGIS [Suspect]
     Route: 030
     Dates: start: 20111212, end: 20111212
  2. SPIRONALACTON [Concomitant]
  3. KAPSOVIT [Concomitant]
  4. CHLORTHIAZIDE TAB [Concomitant]
  5. SYNAGIS [Suspect]
     Route: 030
     Dates: start: 20111013, end: 20111013
  6. FERROUS SULFATE TAB [Concomitant]

REACTIONS (1)
  - BRONCHIOLITIS [None]
